FAERS Safety Report 4871062-2 (Version None)
Quarter: 2005Q4

REPORT INFORMATION
  Report Type: 
  Country: None (occurrence: None)
  Receive Date: 20051229
  Receipt Date: 20051221
  Transmission Date: 20060501
  Serious: Yes (Hospitalization)
  Sender: FDA-Public Use
  Company Number: 200510975BFR

PATIENT
  Age: 18 Year
  Sex: Female
  Weight: 35 kg

DRUGS (2)
  1. CIFLOX (CIPROFLOXACIN) [Suspect]
     Dosage: 800 MG, TOTAL DAILY, INTRAVENOUS
     Route: 042
     Dates: start: 20051201, end: 20051204
  2. TAZOCILLINE [Suspect]
     Dosage: 4 G, TOTAL DAILY, INTRAVENOUS
     Route: 042
     Dates: start: 20051201, end: 20051204

REACTIONS (11)
  - CHEILITIS [None]
  - CYSTITIS ESCHERICHIA [None]
  - ESCHERICHIA SEPSIS [None]
  - FULL BLOOD COUNT ABNORMAL [None]
  - HAEMOPHILUS INFECTION [None]
  - PERITONEAL HAEMORRHAGE [None]
  - PSEUDOMONAS INFECTION [None]
  - PURPURA [None]
  - RASH MACULAR [None]
  - SUPERINFECTION LUNG [None]
  - VIRAL INFECTION [None]
